FAERS Safety Report 6218054-9 (Version None)
Quarter: 2009Q2

REPORT INFORMATION
  Report Type: 
  Country: None (occurrence: None)
  Receive Date: 20090602
  Receipt Date: 20090226
  Transmission Date: 20091009
  Serious: Yes (Other)
  Sender: FDA-Public Use
  Company Number: 2009FG0049

PATIENT
  Age: 69 Year
  Sex: Male
  Weight: 90.7194 kg

DRUGS (26)
  1. FENOGLIDE [Suspect]
     Indication: BLOOD CHOLESTEROL INCREASED
     Dosage: 120 MG, DAILY
     Dates: start: 20081202
  2. FENOGLIDE [Suspect]
     Indication: BLOOD TRIGLYCERIDES INCREASED
     Dosage: 120 MG, DAILY
     Dates: start: 20081202
  3. PRILOSEC [Concomitant]
  4. .. [Concomitant]
  5. ALLOPURINOL [Concomitant]
  6. .. [Concomitant]
  7. FUROSEMIDE INTENSOL [Concomitant]
  8. .. [Concomitant]
  9. METFORMIN HCL [Concomitant]
  10. .. [Concomitant]
  11. KLOR-CON [Concomitant]
  12. .. [Concomitant]
  13. ALTACE [Concomitant]
  14. .. [Concomitant]
  15. TOPROL-XL [Concomitant]
  16. PRECOSE [Concomitant]
  17. .. [Concomitant]
  18. PLAVIX [Concomitant]
  19. .. [Concomitant]
  20. LIPITOR [Concomitant]
  21. .. [Concomitant]
  22. WARFARIN SODIUM [Concomitant]
  23. FOLIC ACID [Concomitant]
  24. .. [Concomitant]
  25. ALPRAZOLAM [Concomitant]
  26. .. [Concomitant]

REACTIONS (1)
  - DRUG INEFFECTIVE [None]
